FAERS Safety Report 10693671 (Version 3)
Quarter: 2015Q1

REPORT INFORMATION
  Report Type: Report from Study
  Country: FR (occurrence: FR)
  Receive Date: 20150106
  Receipt Date: 20150215
  Transmission Date: 20150721
  Serious: Yes (Hospitalization, Other)
  Sender: FDA-Public Use
  Company Number: PHHY2014FR170608

PATIENT
  Age: 25 Year
  Sex: Female
  Weight: 74 kg

DRUGS (9)
  1. GENERIC CICLOSPORIN [Suspect]
     Active Substance: CYCLOSPORINE
     Indication: BONE MARROW FAILURE
     Dosage: 5 MG/KG, UNK
     Route: 042
     Dates: start: 20140812
  2. ATGAM [Suspect]
     Active Substance: EQUINE THYMOCYTE IMMUNE GLOBULIN
     Indication: BONE MARROW FAILURE
     Dosage: 40 MG/KG, QD
     Route: 042
     Dates: start: 20140812, end: 20140815
  3. SOLU-MEDROL [Suspect]
     Active Substance: METHYLPREDNISOLONE SODIUM SUCCINATE
     Indication: PREMEDICATION
     Dosage: 2 MG/KG, QD
     Route: 065
     Dates: start: 20140812, end: 20140815
  4. ATGAM [Suspect]
     Active Substance: EQUINE THYMOCYTE IMMUNE GLOBULIN
     Dosage: UNK
     Route: 065
  5. NIVESTIM [Suspect]
     Active Substance: FILGRASTIM
     Indication: PRODUCT USED FOR UNKNOWN INDICATION
     Dosage: UNK
     Route: 065
     Dates: end: 20140904
  6. SOLU-MEDROL [Suspect]
     Active Substance: METHYLPREDNISOLONE SODIUM SUCCINATE
     Indication: BONE MARROW FAILURE
  7. POLARAMINE [Concomitant]
     Active Substance: DEXCHLORPHENIRAMINE MALEATE
     Indication: PREMEDICATION
     Route: 065
  8. GENERIC CICLOSPORIN [Suspect]
     Active Substance: CYCLOSPORINE
     Indication: PREMEDICATION
  9. PARACETAMOL [Concomitant]
     Active Substance: ACETAMINOPHEN
     Indication: PREMEDICATION
     Route: 065

REACTIONS (14)
  - Capillary leak syndrome [Recovered/Resolved]
  - Pyrexia [Recovered/Resolved]
  - Oesophagitis [Unknown]
  - Abdominal pain upper [Recovering/Resolving]
  - Pancytopenia [Unknown]
  - Sepsis [Recovering/Resolving]
  - Acute kidney injury [Recovering/Resolving]
  - Oral fungal infection [Unknown]
  - Septic shock [Recovering/Resolving]
  - Generalised oedema [Recovered/Resolved]
  - Cardiac failure congestive [Recovered/Resolved]
  - Rash maculo-papular [Unknown]
  - Stomatitis [Unknown]
  - Serum sickness [Unknown]

NARRATIVE: CASE EVENT DATE: 201408
